FAERS Safety Report 5880084-4 (Version None)
Quarter: 2008Q3

REPORT INFORMATION
  Report Type: 
  Country: None (occurrence: None)
  Receive Date: 20080912
  Receipt Date: 20080901
  Transmission Date: 20090109
  Serious: Yes (Hospitalization, Other)
  Sender: FDA-Public Use
  Company Number: FI-AVENTIS-200817071GDDC

PATIENT
  Age: 60 Year
  Sex: Female
  Weight: 86 kg

DRUGS (15)
  1. ARAVA [Suspect]
     Indication: RHEUMATOID ARTHRITIS
     Route: 048
     Dates: start: 20060809
  2. HUMIRA [Suspect]
     Route: 058
     Dates: start: 20060215
  3. SALAZOPRIN [Suspect]
     Indication: RHEUMATOID ARTHRITIS
     Route: 048
     Dates: start: 20050207
  4. PREDNISONE TAB [Suspect]
     Indication: RHEUMATOID ARTHRITIS
     Route: 048
     Dates: start: 20080107
  5. REMICADE [Suspect]
     Indication: RHEUMATOID ARTHRITIS
     Dosage: DOSE: UNK
     Route: 042
     Dates: start: 20050307, end: 20050810
  6. PLACEBO [Suspect]
     Indication: RHEUMATOID ARTHRITIS
     Dosage: DOSE: UNK
     Route: 042
     Dates: start: 20050307, end: 20050810
  7. PREDNISOLONE [Concomitant]
     Indication: RHEUMATOID ARTHRITIS
     Dosage: DOSE: UNK
     Dates: start: 20050207
  8. THYROXIN [Concomitant]
     Route: 048
  9. OMEPRAZOLE [Concomitant]
     Indication: ABDOMINAL PAIN
     Route: 048
     Dates: start: 20061101
  10. MOBIC [Concomitant]
     Indication: ARTHRALGIA
     Route: 048
     Dates: start: 20050809
  11. TRIPTYL [Concomitant]
     Indication: FIBROMYALGIA
     Route: 048
     Dates: start: 20080314
  12. CALCICHEW D3 [Concomitant]
     Indication: PROPHYLAXIS
     Dosage: DOSE: 1000/20
     Route: 048
     Dates: start: 20070418
  13. RIDAURA [Concomitant]
     Dosage: DOSE: UNK
  14. METHOTREXATE [Concomitant]
     Dosage: DOSE: UNK
     Dates: start: 20050207, end: 20051017
  15. HYDROXYCHLOROQUINE [Concomitant]
     Dosage: DOSE: UNK
     Dates: start: 20050207, end: 20050613

REACTIONS (6)
  - ABDOMINAL PAIN [None]
  - FATIGUE [None]
  - FIBROMYALGIA [None]
  - NAUSEA [None]
  - PNEUMONIA [None]
  - PYREXIA [None]
